FAERS Safety Report 13285670 (Version 1)
Quarter: 2017Q1

REPORT INFORMATION
  Report Type: Spontaneous
  Country: US (occurrence: JP)
  Receive Date: 20170301
  Receipt Date: 20170301
  Transmission Date: 20170428
  Serious: Yes (Hospitalization)
  Sender: FDA-Public Use
  Company Number: JP-CELGENEUS-JPN-2017029122

PATIENT
  Age: 8 Decade
  Sex: Male

DRUGS (1)
  1. VIDAZA [Suspect]
     Active Substance: AZACITIDINE
     Indication: PRODUCT USED FOR UNKNOWN INDICATION
     Route: 065

REACTIONS (1)
  - Necrotising fasciitis [Not Recovered/Not Resolved]
